FAERS Safety Report 19458606 (Version 1)
Quarter: 2021Q2

REPORT INFORMATION
  Report Type: Spontaneous
  Country: US (occurrence: US)
  Receive Date: 20210624
  Receipt Date: 20210624
  Transmission Date: 20210717
  Serious: Yes (Hospitalization)
  Sender: FDA-Public Use
  Company Number: None

PATIENT
  Sex: Female

DRUGS (10)
  1. PEPCID AC [Concomitant]
     Active Substance: FAMOTIDINE
  2. PROCRIT [Suspect]
     Active Substance: ERYTHROPOIETIN
     Indication: CHRONIC KIDNEY DISEASE
     Dosage: ?          OTHER DOSE:20,000 UNITS;?
     Route: 058
     Dates: start: 20200724
  3. CLONIDINE. [Concomitant]
     Active Substance: CLONIDINE
  4. PREDNISONE. [Concomitant]
     Active Substance: PREDNISONE
  5. TACROLIMUS. [Concomitant]
     Active Substance: TACROLIMUS
  6. TEMAZEPAM. [Concomitant]
     Active Substance: TEMAZEPAM
  7. MYCOPHENOLAT [Concomitant]
     Active Substance: MYCOPHENOLATE MOFETIL
  8. PROBIOIC [Concomitant]
  9. RAMIPRIL. [Concomitant]
     Active Substance: RAMIPRIL
  10. SODIUM BICAR [Concomitant]

REACTIONS (1)
  - Renal transplant [None]
